FAERS Safety Report 11891188 (Version 2)
Quarter: 2016Q1

REPORT INFORMATION
  Report Type: Spontaneous
  Country: IT (occurrence: IT)
  Receive Date: 20160106
  Receipt Date: 20160119
  Transmission Date: 20160526
  Serious: Yes (Other)
  Sender: FDA-Public Use
  Company Number: IT-CIPLA LTD.-2015IT10020

PATIENT

DRUGS (2)
  1. EPIRUBICIN [Suspect]
     Active Substance: EPIRUBICIN
     Indication: INVASIVE DUCTAL BREAST CARCINOMA
     Dosage: 90 MG/M2, 2 CYCLES OF CHEMOTHERAPY ON A 21 DAYS OUTPATIENT BASIS
     Route: 065
  2. CYCLOPHOSPHAMIDE. [Suspect]
     Active Substance: CYCLOPHOSPHAMIDE
     Indication: INVASIVE DUCTAL BREAST CARCINOMA
     Dosage: 600 MG/M2, 2 CYCLES OF CHEMOTHERAPY ON A 21 DAYS OUTPATIENT BASIS
     Route: 065

REACTIONS (3)
  - Premature separation of placenta [Unknown]
  - Oligohydramnios [Unknown]
  - Exposure during pregnancy [Unknown]
